FAERS Safety Report 24844087 (Version 2)
Quarter: 2025Q1

REPORT INFORMATION
  Report Type: Spontaneous
  Country: FR (occurrence: FR)
  Receive Date: 20250115
  Receipt Date: 20250214
  Transmission Date: 20250409
  Serious: Yes (Other)
  Sender: AUROBINDO
  Company Number: FR-BRISTOL-MYERS SQUIBB COMPANY-2024-200434

PATIENT
  Age: 76 Year
  Sex: Male
  Weight: 76 kg

DRUGS (4)
  1. PERINDOPRIL [Suspect]
     Active Substance: PERINDOPRIL
     Indication: Product used for unknown indication
     Dosage: 2 MILLIGRAM, ONCE A DAY
     Route: 048
     Dates: start: 20221007
  2. ELIQUIS [Interacting]
     Active Substance: APIXABAN
     Indication: Blood pressure abnormal
     Route: 065
     Dates: start: 202209
  3. ELIQUIS [Interacting]
     Active Substance: APIXABAN
     Route: 065
     Dates: start: 20221007
  4. VYNDAQEL [Interacting]
     Active Substance: TAFAMIDIS MEGLUMINE
     Indication: Cardiac amyloidosis
     Dosage: 61 MILLIGRAM, ONCE A DAY
     Route: 048
     Dates: start: 202410, end: 20241225

REACTIONS (7)
  - Cardiac amyloidosis [Unknown]
  - Cataract [Unknown]
  - Memory impairment [Not Recovered/Not Resolved]
  - Off label use [Unknown]
  - Product dose omission in error [Unknown]
  - Intentional product misuse [Unknown]
  - Drug interaction [Not Recovered/Not Resolved]

NARRATIVE: CASE EVENT DATE: 20220901
